FAERS Safety Report 8563788-4 (Version None)
Quarter: 2012Q3

REPORT INFORMATION
  Report Type: 
  Country: None (occurrence: None)
  Receive Date: 20120803
  Receipt Date: 20100902
  Transmission Date: 20120928
  Serious: Yes (Hospitalization)
  Sender: FDA-Public Use
  Company Number: US-BAYER-200942647NA

PATIENT
  Age: 46 Year
  Sex: Female
  Weight: 102 kg

DRUGS (7)
  1. YASMIN [Suspect]
     Dosage: UNK
  2. ZELNORM [Concomitant]
  3. NAPROXEN (ALEVE) [Concomitant]
  4. MOTRIN [Concomitant]
  5. IBUPROFEN [Concomitant]
  6. YAZ [Suspect]
     Indication: OVARIAN CYST
     Dosage: UNK
     Route: 048
     Dates: start: 20080401, end: 20080521
  7. IBUPROFEN (ADVIL) [Concomitant]

REACTIONS (10)
  - DYSPNOEA [None]
  - CHEST PAIN [None]
  - COUGH [None]
  - DEEP VEIN THROMBOSIS [None]
  - THROMBOSIS [None]
  - HYPERHIDROSIS [None]
  - PAIN IN EXTREMITY [None]
  - PULMONARY EMBOLISM [None]
  - FATIGUE [None]
  - NAUSEA [None]
